FAERS Safety Report 4935325-4 (Version None)
Quarter: 2006Q1

REPORT INFORMATION
  Report Type: 
  Country: None (occurrence: None)
  Receive Date: 20060302
  Receipt Date: 20060215
  Transmission Date: 20060701
  Serious: Yes (Death)
  Sender: FDA-Public Use
  Company Number: C-06-0008

PATIENT
  Age: 8 Year
  Sex: Male

DRUGS (2)
  1. CARBAMAZEPINE [Suspect]
  2. . [Concomitant]

REACTIONS (2)
  - CONVULSION [None]
  - PNEUMONIA [None]
